FAERS Safety Report 5095407-6 (Version None)
Quarter: 2006Q3

REPORT INFORMATION
  Report Type: 
  Country: None (occurrence: None)
  Receive Date: 20060830
  Receipt Date: 20060814
  Transmission Date: 20061208
  Serious: Yes (Other)
  Sender: FDA-Public Use
  Company Number: 8018357

PATIENT
  Age: 52 Year
  Sex: Male

DRUGS (6)
  1. KEPPRA [Suspect]
     Indication: BRAIN NEOPLASM MALIGNANT
     Dosage: 1000 MG 2/D PO
     Route: 048
     Dates: start: 20060429, end: 20060810
  2. DEXAMETHASONE TAB [Concomitant]
  3. PREVACID [Concomitant]
  4. LEVOTHYROXINE SODIUM [Concomitant]
  5. FLOMAX [Concomitant]
  6. HYDROCODONE BITARTRATE [Concomitant]

REACTIONS (13)
  - ANXIETY [None]
  - ASTHENIA [None]
  - CONFUSIONAL STATE [None]
  - COORDINATION ABNORMAL [None]
  - DELUSION [None]
  - DIZZINESS [None]
  - GAIT DISTURBANCE [None]
  - HALLUCINATION [None]
  - PANIC ATTACK [None]
  - PARANOIA [None]
  - RASH [None]
  - SOMNOLENCE [None]
  - THROMBOSIS [None]
